FAERS Safety Report 9896572 (Version 1)
Quarter: 2014Q1

REPORT INFORMATION
  Report Type: Spontaneous
  Country: US (occurrence: US)
  Receive Date: 20140213
  Receipt Date: 20140213
  Transmission Date: 20141002
  Serious: No
  Sender: FDA-Public Use
  Company Number: US-BRISTOL-MYERS SQUIBB COMPANY-19119213

PATIENT
  Age: 16 Year
  Sex: Female

DRUGS (10)
  1. ABATACEPT SUBQ INJECTION 125MG/ML [Suspect]
     Dosage: 1DF: INJECT 125MG SUBCUTANEOUSLY INTO FAT TISSUE EVERY WEEK.?ORENCIA 125MGIML PFS (4 PACK).
     Route: 058
  2. METHOTREXATE [Concomitant]
     Dosage: 1DF:INJ 25MG/ML.
  3. IBUPROFEN [Concomitant]
  4. IBUPROFEN [Concomitant]
     Dosage: CAPS
  5. MULTIVITAMIN [Concomitant]
     Dosage: CAPS
  6. PLAQUENIL [Concomitant]
     Dosage: TABS
  7. FOLIC ACID [Concomitant]
     Dosage: TABS
  8. LIDOCAINE [Concomitant]
     Dosage: LIDOCAINE 3% CREAM
  9. BABY ASPIRIN [Concomitant]
     Dosage: 1DF: CHW 81MG.
  10. CALCIUM + VITAMIN D [Concomitant]
     Dosage: CHEWABLE

REACTIONS (1)
  - Hypersensitivity [Unknown]
